FAERS Safety Report 5892800-6 (Version None)
Quarter: 2008Q3

REPORT INFORMATION
  Report Type: 
  Country: None (occurrence: None)
  Receive Date: 20080923
  Receipt Date: 20080919
  Transmission Date: 20090109
  Serious: Yes (Death)
  Sender: FDA-Public Use
  Company Number: US-SANOFI-SYNTHELABO-F01200801473

PATIENT
  Sex: Female

DRUGS (5)
  1. AVASTIN [Suspect]
     Dosage: UNK
     Route: 065
  2. FLUOROURACIL [Suspect]
     Dosage: UNK
     Route: 065
  3. IRINOTECAN HCL [Suspect]
     Dosage: UNK
     Route: 065
  4. OXALIPLATIN [Suspect]
     Indication: COLORECTAL CANCER METASTATIC
     Dosage: UNK
     Route: 065
  5. BLINDED GDC-0449 OR PLACEBO [Suspect]
     Dosage: 1 DF
     Route: 048
     Dates: start: 20080705

REACTIONS (1)
  - DEHYDRATION [None]
